FAERS Safety Report 11297741 (Version 1)
Quarter: 2015Q3

REPORT INFORMATION
  Report Type: Spontaneous
  Country: US (occurrence: US)
  Receive Date: 20150722
  Receipt Date: 20150722
  Transmission Date: 20151125
  Serious: No
  Sender: FDA-Public Use
  Company Number: US-ELI_LILLY_AND_COMPANY-US200910003475

PATIENT
  Sex: Female

DRUGS (10)
  1. HUMATROPE [Suspect]
     Active Substance: SOMATROPIN
     Indication: HYPOPITUITARISM
     Dosage: 0.4 MG, DAILY (1/D)
     Route: 058
     Dates: start: 20040714
  2. MULTIVITAMIN [Concomitant]
     Active Substance: VITAMINS
  3. FISH OIL [Concomitant]
     Active Substance: FISH OIL
  4. COENZYME [Concomitant]
     Active Substance: UBIDECARENONE
  5. ZETIA [Concomitant]
     Active Substance: EZETIMIBE
  6. HUMATROPE [Suspect]
     Active Substance: SOMATROPIN
     Dosage: UNK, OTHER
     Route: 058
  7. CALCIUM [Concomitant]
     Active Substance: CALCIUM
     Indication: OSTEOPENIA
  8. SYNTHROID [Concomitant]
     Active Substance: LEVOTHYROXINE SODIUM
  9. DIOVAN [Concomitant]
     Active Substance: VALSARTAN
  10. ACTONEL [Concomitant]
     Active Substance: RISEDRONATE SODIUM

REACTIONS (8)
  - Diabetic neuropathy [Recovered/Resolved]
  - Glucose tolerance impaired [Not Recovered/Not Resolved]
  - Hypersensitivity [Recovered/Resolved]
  - Eustachian tube obstruction [Recovered/Resolved]
  - Dizziness [Recovered/Resolved]
  - Ear pain [Not Recovered/Not Resolved]
  - Vitamin D deficiency [Unknown]
  - Diabetes mellitus [Not Recovered/Not Resolved]

NARRATIVE: CASE EVENT DATE: 2004
